FAERS Safety Report 12137445 (Version 1)
Quarter: 2016Q1

REPORT INFORMATION
  Report Type: Spontaneous
  Country: FR (occurrence: FR)
  Receive Date: 20160302
  Receipt Date: 20160302
  Transmission Date: 20160526
  Serious: Yes (Life-Threatening, Hospitalization, Other)
  Sender: FDA-Public Use
  Company Number: FR-PFIZER INC-2016130793

PATIENT
  Age: 86 Year
  Sex: Female

DRUGS (2)
  1. CARDENSIEL [Interacting]
     Active Substance: BISOPROLOL FUMARATE
     Dosage: 2.5 MG, DAILY
     Route: 048
     Dates: end: 20160205
  2. CORDARONE [Suspect]
     Active Substance: AMIODARONE HYDROCHLORIDE
     Dosage: 200 MG, DAILY
     Route: 048
     Dates: end: 20160205

REACTIONS (7)
  - Drug interaction [Unknown]
  - Bradycardia [Recovered/Resolved]
  - Hypothermia [Unknown]
  - Bundle branch block left [Unknown]
  - Sinus node dysfunction [Unknown]
  - Hyperkalaemia [Unknown]
  - Urinary tract disorder [Unknown]

NARRATIVE: CASE EVENT DATE: 20160205
